FAERS Safety Report 7630810-9 (Version None)
Quarter: 2011Q3

REPORT INFORMATION
  Report Type: 
  Country: None (occurrence: None)
  Receive Date: 20110723
  Receipt Date: 20110718
  Transmission Date: 20111222
  Serious: Yes (Other)
  Sender: FDA-Public Use
  Company Number: DK-ABBOTT-11P-044-0711013-00

PATIENT
  Sex: Female

DRUGS (2)
  1. CLOZAPINE [Suspect]
     Indication: SCHIZOPHRENIA
     Dates: start: 19760101
  2. AKINETON [Suspect]
     Indication: SCHIZOPHRENIA
     Route: 048
     Dates: start: 19760101

REACTIONS (1)
  - TOOTH LOSS [None]
